FAERS Safety Report 9745098 (Version 3)
Quarter: 2013Q4

REPORT INFORMATION
  Report Type: Spontaneous
  Country: US (occurrence: US)
  Receive Date: 20131211
  Receipt Date: 20131230
  Transmission Date: 20140711
  Serious: Yes (Hospitalization, Other)
  Sender: FDA-Public Use
  Company Number: US-SHIRE-ALL1-2013-08523

PATIENT
  Age: 49 Year
  Sex: Female
  Weight: 58.96 kg

DRUGS (8)
  1. LIALDA [Suspect]
     Indication: COLITIS ULCERATIVE
     Dosage: 1.2 G, 4X/DAY:QID
     Route: 048
     Dates: start: 20131118, end: 20131120
  2. PREDNISONE [Concomitant]
     Indication: COLITIS ULCERATIVE
     Dosage: 60 MG, 1X/DAY:QD
     Route: 048
     Dates: start: 20131107
  3. IMURAN                             /00001501/ [Concomitant]
     Indication: COLITIS ULCERATIVE
     Dosage: 50 MG, 1X/DAY:QD
     Route: 048
     Dates: start: 20131107
  4. PROTONIX [Concomitant]
     Indication: GASTROOESOPHAGEAL REFLUX DISEASE
     Dosage: 40 MG, 1X/DAY:QD
     Route: 048
     Dates: start: 20131107
  5. POTASSIUM [Concomitant]
     Indication: BLOOD POTASSIUM DECREASED
     Dosage: 20 MEQ, 1X/DAY:QD
     Route: 048
     Dates: start: 201311
  6. POTASSIUM [Concomitant]
     Indication: MINERAL SUPPLEMENTATION
     Dosage: 325 MEQ, 1X/DAY:QD
     Route: 048
     Dates: start: 20131107
  7. IRON                               /00023503/ [Concomitant]
     Indication: BLOOD IRON DECREASED
     Dosage: 325 MG, 2X/DAY:BID
     Route: 048
     Dates: start: 20131107
  8. IRON                               /00023503/ [Concomitant]
     Indication: MINERAL SUPPLEMENTATION

REACTIONS (9)
  - Dehydration [Recovered/Resolved]
  - Frequent bowel movements [Recovered/Resolved]
  - Haematochezia [Recovered/Resolved]
  - Condition aggravated [Recovering/Resolving]
  - Drug ineffective [Recovered/Resolved]
  - Colitis ulcerative [Recovered/Resolved]
  - Abnormal loss of weight [Recovering/Resolving]
  - Anaemia [Recovered/Resolved]
  - Drug prescribing error [Recovered/Resolved]
